FAERS Safety Report 11827088 (Version 2)
Quarter: 2016Q2

REPORT INFORMATION
  Report Type: Spontaneous
  Country: US (occurrence: US)
  Receive Date: 20151211
  Receipt Date: 20160414
  Transmission Date: 20160815
  Serious: Yes (Hospitalization)
  Sender: FDA-Public Use
  Company Number: US-BEH-2015056452

PATIENT
  Sex: Female
  Weight: 92 kg

DRUGS (31)
  1. PRIVIGEN [Suspect]
     Active Substance: HUMAN IMMUNOGLOBULIN G
     Indication: IMMUNODEFICIENCY COMMON VARIABLE
     Route: 042
  2. ACETAMINOPHEN. [Concomitant]
     Active Substance: ACETAMINOPHEN
  3. CUBICIN [Concomitant]
     Active Substance: DAPTOMYCIN
  4. CYMBALTA [Concomitant]
     Active Substance: DULOXETINE HYDROCHLORIDE
  5. LEVOXYL [Concomitant]
     Active Substance: LEVOTHYROXINE SODIUM
  6. PROPAFENONE. [Concomitant]
     Active Substance: PROPAFENONE
  7. AMLODIPINE BESYLATE. [Concomitant]
     Active Substance: AMLODIPINE BESYLATE
  8. TOBRAMYCIN. [Concomitant]
     Active Substance: TOBRAMYCIN
  9. PREMARIN [Concomitant]
     Active Substance: ESTROGENS, CONJUGATED
  10. ALLEGRA [Concomitant]
     Active Substance: FEXOFENADINE HYDROCHLORIDE
  11. KLOR-CON [Concomitant]
     Active Substance: POTASSIUM CHLORIDE
  12. DIPHENHYDRAMINE. [Concomitant]
     Active Substance: DIPHENHYDRAMINE
  13. SODIUM CHLORIDE. [Concomitant]
     Active Substance: SODIUM CHLORIDE
  14. AMBIEN [Concomitant]
     Active Substance: ZOLPIDEM TARTRATE
  15. TOPROL XL [Concomitant]
     Active Substance: METOPROLOL SUCCINATE
  16. INVANZ [Concomitant]
     Active Substance: ERTAPENEM SODIUM
  17. MEDROL [Concomitant]
     Active Substance: METHYLPREDNISOLONE
  18. ADCIRCA [Concomitant]
     Active Substance: TADALAFIL
  19. PRIVIGEN [Suspect]
     Active Substance: HUMAN IMMUNOGLOBULIN G
     Indication: HYPOGAMMAGLOBULINAEMIA
     Route: 042
  20. PRIVIGEN [Suspect]
     Active Substance: HUMAN IMMUNOGLOBULIN G
     Indication: HYPOGAMMAGLOBULINAEMIA
     Route: 042
  21. NORMAL SALINE [Concomitant]
     Active Substance: SODIUM CHLORIDE
  22. EPIPEN [Concomitant]
     Active Substance: EPINEPHRINE
  23. NEXIUM [Concomitant]
     Active Substance: ESOMEPRAZOLE MAGNESIUM
  24. METFORMIN [Concomitant]
     Active Substance: METFORMIN HYDROCHLORIDE
  25. AMIKACIN [Concomitant]
     Active Substance: AMIKACIN
  26. HEPARIN [Concomitant]
     Active Substance: HEPARIN SODIUM
  27. LIDOCAINE. [Concomitant]
     Active Substance: LIDOCAINE
  28. COUMADIN [Concomitant]
     Active Substance: WARFARIN SODIUM
  29. OXYCODONE [Concomitant]
     Active Substance: OXYCODONE
  30. TRIAMETRENE-HCTZ [Concomitant]
  31. BUTRANS [Concomitant]
     Active Substance: BUPRENORPHINE

REACTIONS (3)
  - Sepsis [Unknown]
  - Urinary tract infection [Unknown]
  - Inappropriate schedule of drug administration [Unknown]
